FAERS Safety Report 4598832-2 (Version None)
Quarter: 2005Q1

REPORT INFORMATION
  Report Type: 
  Country: None (occurrence: None)
  Receive Date: 20050304
  Receipt Date: 20050201
  Transmission Date: 20050727
  Serious: Yes (Life-Threatening, Other)
  Sender: FDA-Public Use
  Company Number: JP-JNJFOC-20050105070

PATIENT
  Sex: Female

DRUGS (14)
  1. REMICADE [Suspect]
     Dosage: 9TH INFUSION.
     Route: 042
  2. REMICADE [Suspect]
     Dosage: 8TH INFUSION.
     Route: 042
  3. REMICADE [Suspect]
     Dosage: 7TH INFUSION.
     Route: 042
  4. REMICADE [Suspect]
     Dosage: 6TH INFUSION.
     Route: 042
  5. REMICADE [Suspect]
     Dosage: 5TH INFUSION
     Route: 042
  6. REMICADE [Suspect]
     Dosage: 4TH INFUSION
     Route: 042
  7. REMICADE [Suspect]
     Dosage: 3RD INFUSION
     Route: 042
  8. REMICADE [Suspect]
     Dosage: 2ND INFUSION
     Route: 042
  9. REMICADE [Suspect]
     Indication: RHEUMATOID ARTHRITIS
     Dosage: FIRST INFUSION.
     Route: 042
  10. RHEUMATREX [Concomitant]
     Indication: RHEUMATOID ARTHRITIS
  11. PREDONIN [Concomitant]
     Indication: RHEUMATOID ARTHRITIS
  12. AZULFIDINE EN-TABS [Concomitant]
     Indication: RHEUMATOID ARTHRITIS
  13. CLINORIL [Concomitant]
     Indication: RHEUMATOID ARTHRITIS
  14. FOLIAMIN [Concomitant]

REACTIONS (10)
  - ABDOMINAL PAIN UPPER [None]
  - ANAPHYLACTIC REACTION [None]
  - CHEST PAIN [None]
  - DIARRHOEA [None]
  - DYSPNOEA [None]
  - HOT FLUSH [None]
  - HYPOTENSION [None]
  - INFUSION RELATED REACTION [None]
  - OXYGEN SATURATION DECREASED [None]
  - PYREXIA [None]
